FAERS Safety Report 15906867 (Version 1)
Quarter: 2019Q1

REPORT INFORMATION
  Report Type: Spontaneous
  Country: US (occurrence: US)
  Receive Date: 20190204
  Receipt Date: 20190204
  Transmission Date: 20190417
  Serious: No
  Sender: FDA-Public Use
  Company Number: US-PFIZER INC-2019051395

PATIENT
  Age: 11 Year
  Sex: Male

DRUGS (2)
  1. GENOTROPIN [Suspect]
     Active Substance: SOMATROPIN
     Dosage: 3 MG, UNK (ALTERNATING DOSE OF 22.8MG AND 3MG, 7 DAYS A WEEK)
  2. GENOTROPIN [Suspect]
     Active Substance: SOMATROPIN
     Dosage: 22.8 MG, UNK (ALTERNATING DOSE OF 22.8MG AND 3MG, 7 DAYS A WEEK)

REACTIONS (8)
  - Headache [Unknown]
  - Arthralgia [Unknown]
  - Blood urea nitrogen/creatinine ratio increased [Unknown]
  - Alopecia [Unknown]
  - Blood urea increased [Unknown]
  - Skin disorder [Unknown]
  - Bone density increased [Unknown]
  - Insulin-like growth factor increased [Unknown]

NARRATIVE: CASE EVENT DATE: 20180920
